FAERS Safety Report 7815690-0 (Version None)
Quarter: 2011Q4

REPORT INFORMATION
  Report Type: 
  Country: None (occurrence: None)
  Receive Date: 20111014
  Receipt Date: 20111006
  Transmission Date: 20120403
  Serious: Yes (Other)
  Sender: FDA-Public Use
  Company Number: PHHY2011US88796

PATIENT
  Age: 58 Year
  Sex: Male

DRUGS (18)
  1. KETAMINE HCL [Interacting]
     Dosage: 100 MG, TOTAL
     Route: 042
  2. MIDAZOLAM HCL [Concomitant]
     Dosage: 1 MG, UNK
  3. PROPOFOL [Concomitant]
  4. LISINOPRIL [Concomitant]
  5. TOLTERODINE TARTRATE [Concomitant]
  6. WARFARIN SODIUM [Concomitant]
  7. ZOLPIDEM TARTRATE [Concomitant]
  8. BUDESONIDE [Concomitant]
  9. SUCCINYLCHOLINE CHLORIDE [Concomitant]
  10. METFORMIN HYDROCHLORIDE [Concomitant]
  11. FENTANYL [Concomitant]
  12. FERROUS SULFATE TAB [Concomitant]
  13. ALBUTEROL [Concomitant]
  14. OMEPRAZOLE [Concomitant]
  15. GABAPENTIN [Suspect]
     Indication: PAIN
     Dosage: 900 MG, TID
  16. HYDROCHLOROTHIAZIDE [Concomitant]
  17. SENNA [Concomitant]
  18. FORMOTEROL FUMARATE [Concomitant]

REACTIONS (8)
  - DRUG INTERACTION [None]
  - UNRESPONSIVE TO STIMULI [None]
  - HYPOTONIA [None]
  - PCO2 INCREASED [None]
  - DEPRESSED LEVEL OF CONSCIOUSNESS [None]
  - DYSKINESIA [None]
  - DISSOCIATION [None]
  - AREFLEXIA [None]
